FAERS Safety Report 19240369 (Version 1)
Quarter: 2021Q2

REPORT INFORMATION
  Report Type: Spontaneous
  Country: CN (occurrence: CN)
  Receive Date: 20210511
  Receipt Date: 20210511
  Transmission Date: 20210717
  Serious: Yes (Other)
  Sender: FDA-Public Use
  Company Number: CN-ROCHE-2827668

PATIENT
  Age: 75 Year
  Sex: Male

DRUGS (6)
  1. MABTHERA [Suspect]
     Active Substance: RITUXIMAB
     Indication: MARGINAL ZONE LYMPHOMA STAGE IV
     Route: 065
     Dates: start: 20201117
  2. DOMPERIDONE [Concomitant]
     Active Substance: DOMPERIDONE
     Indication: GASTRODUODENAL ULCER
     Route: 048
  3. TRIMEBUTINE [Concomitant]
     Active Substance: TRIMEBUTINE
     Indication: GASTRODUODENAL ULCER
     Route: 048
  4. ZANUBRUTINIB [Concomitant]
     Active Substance: ZANUBRUTINIB
     Indication: PRODUCT USED FOR UNKNOWN INDICATION
  5. BENDAMUSTINE [Concomitant]
     Active Substance: BENDAMUSTINE
     Indication: MARGINAL ZONE LYMPHOMA STAGE IV
     Dates: start: 20201117
  6. OMEPRAZOLE. [Concomitant]
     Active Substance: OMEPRAZOLE
     Indication: GASTRODUODENAL ULCER
     Route: 048

REACTIONS (2)
  - Off label use [Unknown]
  - Pneumonitis chemical [Unknown]

NARRATIVE: CASE EVENT DATE: 20210419
